FAERS Safety Report 21615814 (Version 2)
Quarter: 2022Q4

REPORT INFORMATION
  Report Type: Report from Study
  Country: US (occurrence: US)
  Receive Date: 20221118
  Receipt Date: 20221228
  Transmission Date: 20230113
  Serious: Yes (Hospitalization)
  Sender: FDA-Public Use
  Company Number: US-BIOGEN-2022BI01167555

PATIENT
  Sex: Female

DRUGS (2)
  1. TYSABRI [Suspect]
     Active Substance: NATALIZUMAB
     Indication: Multiple sclerosis
     Route: 050
     Dates: start: 20200714, end: 20210315
  2. TYSABRI [Suspect]
     Active Substance: NATALIZUMAB
     Route: 050
     Dates: start: 20200714, end: 20210315

REACTIONS (7)
  - Urosepsis [Unknown]
  - Acute kidney injury [Unknown]
  - Urinary tract obstruction [Unknown]
  - Wound [Unknown]
  - Multiple sclerosis [Not Recovered/Not Resolved]
  - Drug resistance [Unknown]
  - Infection [Unknown]
